FAERS Safety Report 9790808 (Version 3)
Quarter: 2015Q2

REPORT INFORMATION
  Report Type: Spontaneous
  Country: US (occurrence: US)
  Receive Date: 20131231
  Receipt Date: 20150525
  Transmission Date: 20150821
  Serious: No
  Sender: FDA-Public Use
  Company Number: US-ASTRAZENECA-2013SE72603

PATIENT
  Age: 901 Month
  Sex: Female
  Weight: 86.2 kg

DRUGS (15)
  1. SYMBICORT [Suspect]
     Active Substance: BUDESONIDE\FORMOTEROL FUMARATE DIHYDRATE
     Indication: ASTHMA
     Dosage: 160 4.5 MCG,  2 PUFFS BID
     Route: 055
     Dates: start: 2010
  2. SYMBICORT [Suspect]
     Active Substance: BUDESONIDE\FORMOTEROL FUMARATE DIHYDRATE
     Indication: CHRONIC OBSTRUCTIVE PULMONARY DISEASE
     Dosage: 160 4.5 MCG,  2 PUFFS BID
     Route: 055
     Dates: start: 2010
  3. ZAFIRLUKAST. [Suspect]
     Active Substance: ZAFIRLUKAST
     Indication: MULTIPLE ALLERGIES
     Route: 048
  4. SYMBICORT [Suspect]
     Active Substance: BUDESONIDE\FORMOTEROL FUMARATE DIHYDRATE
     Indication: ASTHMA
     Dosage: 160 4.5 MCG,  2 PUFFS DAILY
     Route: 055
  5. SYMBICORT [Suspect]
     Active Substance: BUDESONIDE\FORMOTEROL FUMARATE DIHYDRATE
     Indication: CHRONIC OBSTRUCTIVE PULMONARY DISEASE
     Dosage: 160/4.5 MCG,  TWO PUFFS TWICE DAILY
     Route: 055
  6. SINGULAIR [Concomitant]
     Active Substance: MONTELUKAST SODIUM
     Indication: CHRONIC OBSTRUCTIVE PULMONARY DISEASE
     Dosage: DAILY
  7. ARMOUR THYROID REPLACEMENT [Concomitant]
     Indication: THYROID DISORDER
     Dosage: DAILY
  8. BLOOD PRESSURE MEDICATION [Concomitant]
     Active Substance: UNSPECIFIED INGREDIENT
  9. SYMBICORT [Suspect]
     Active Substance: BUDESONIDE\FORMOTEROL FUMARATE DIHYDRATE
     Indication: CHRONIC OBSTRUCTIVE PULMONARY DISEASE
     Dosage: 160 4.5 MCG,  2 PUFFS BID
     Route: 055
     Dates: start: 201309
  10. SYMBICORT [Suspect]
     Active Substance: BUDESONIDE\FORMOTEROL FUMARATE DIHYDRATE
     Indication: CHRONIC OBSTRUCTIVE PULMONARY DISEASE
     Dosage: 160 4.5 MCG,  2 PUFFS DAILY
     Route: 055
  11. SYMBICORT [Suspect]
     Active Substance: BUDESONIDE\FORMOTEROL FUMARATE DIHYDRATE
     Indication: ASTHMA
     Dosage: 160 4.5 MCG,  2 PUFFS BID
     Route: 055
     Dates: start: 201309
  12. ZAFIRLUKAST. [Suspect]
     Active Substance: ZAFIRLUKAST
     Indication: MULTIPLE ALLERGIES
     Route: 048
     Dates: start: 201309
  13. SYMBICORT [Suspect]
     Active Substance: BUDESONIDE\FORMOTEROL FUMARATE DIHYDRATE
     Indication: ASTHMA
     Dosage: 160/4.5 MCG,  TWO PUFFS TWICE DAILY
     Route: 055
  14. SINGULAIR [Concomitant]
     Active Substance: MONTELUKAST SODIUM
     Indication: ASTHMA
     Dosage: DAILY
  15. ZAFIRLUKAST. [Suspect]
     Active Substance: ZAFIRLUKAST
     Indication: MULTIPLE ALLERGIES
     Route: 048
     Dates: start: 2013

REACTIONS (12)
  - Viral infection [Unknown]
  - Intentional product misuse [Unknown]
  - Anxiety [Unknown]
  - Dyspnoea [Recovering/Resolving]
  - Scoliosis [Unknown]
  - Body height decreased [Unknown]
  - Malaise [Unknown]
  - Upper-airway cough syndrome [Unknown]
  - Wheezing [Recovering/Resolving]
  - Panic disorder [Unknown]
  - Presyncope [Recovering/Resolving]
  - Muscle spasms [Unknown]

NARRATIVE: CASE EVENT DATE: 201309
